FAERS Safety Report 16024511 (Version 6)
Quarter: 2020Q2

REPORT INFORMATION
  Report Type: Spontaneous
  Country: US (occurrence: US)
  Receive Date: 20190301
  Receipt Date: 20200608
  Transmission Date: 20200713
  Serious: Yes (Life-Threatening, Hospitalization, Other)
  Sender: FDA-Public Use
  Company Number: US-PFIZER INC-2019084532

PATIENT
  Age: 53 Year
  Sex: Male
  Weight: 79 kg

DRUGS (4)
  1. DEPO-MEDROL [Suspect]
     Active Substance: METHYLPREDNISOLONE ACETATE
     Indication: NECK INJURY
     Dosage: 80 MG, SINGLE
     Route: 008
     Dates: start: 2017, end: 2017
  2. DEPO-MEDROL [Suspect]
     Active Substance: METHYLPREDNISOLONE ACETATE
     Indication: PAIN
  3. DEPO-MEDROL [Suspect]
     Active Substance: METHYLPREDNISOLONE ACETATE
     Indication: HERNIA PAIN
     Dosage: 80 MG, SINGLE
     Route: 008
     Dates: start: 201804, end: 201804
  4. DEPO-MEDROL [Suspect]
     Active Substance: METHYLPREDNISOLONE ACETATE
     Indication: HERNIA
     Dosage: 80 MG, SINGLE
     Route: 008
     Dates: start: 2016, end: 2016

REACTIONS (15)
  - Glucose tolerance impaired [Not Recovered/Not Resolved]
  - Feeling abnormal [Unknown]
  - Off label use [Unknown]
  - Drug ineffective [Not Recovered/Not Resolved]
  - Dyspnoea [Not Recovered/Not Resolved]
  - Coronary artery occlusion [Recovered/Resolved with Sequelae]
  - Chest pain [Unknown]
  - Product use issue [Unknown]
  - Cardiac arrest [Unknown]
  - Vision blurred [Not Recovered/Not Resolved]
  - Injury [Unknown]
  - Chest discomfort [Not Recovered/Not Resolved]
  - Dizziness [Recovered/Resolved]
  - Thrombosis [Recovered/Resolved with Sequelae]
  - Arrhythmia [Not Recovered/Not Resolved]

NARRATIVE: CASE EVENT DATE: 2016
